FAERS Safety Report 19897181 (Version 1)
Quarter: 2021Q3

REPORT INFORMATION
  Report Type: Spontaneous
  Country: US (occurrence: US)
  Receive Date: 20210930
  Receipt Date: 20210930
  Transmission Date: 20211014
  Serious: No
  Sender: FDA-Public Use
  Company Number: US-AUROBINDO-AUR-APL-2021-023131

PATIENT
  Age: 75 Year
  Sex: Male
  Weight: 79 kg

DRUGS (4)
  1. SUMATRIPTAN TABLETS 50MG [Suspect]
     Active Substance: SUMATRIPTAN
     Indication: MIGRAINE
     Dosage: 1 DOSAGE FORM, EVERY TWO HOURS AS NEEDED
     Route: 048
     Dates: start: 20210527
  2. SUMATRIPTAN TABLETS 50MG [Suspect]
     Active Substance: SUMATRIPTAN
     Dosage: 100 MILLIGRAM, LAST NIGHT
     Route: 048
  3. LIPITOR [Concomitant]
     Active Substance: ATORVASTATIN CALCIUM
     Indication: PRODUCT USED FOR UNKNOWN INDICATION
     Dosage: UNK
     Route: 065
  4. CLONAZEPAM. [Concomitant]
     Active Substance: CLONAZEPAM
     Indication: PRODUCT USED FOR UNKNOWN INDICATION
     Dosage: UNK
     Route: 065

REACTIONS (5)
  - Headache [Not Recovered/Not Resolved]
  - Nasal congestion [Unknown]
  - Sinusitis [Unknown]
  - Drug ineffective [Unknown]
  - Ear congestion [Unknown]
